FAERS Safety Report 24754668 (Version 2)
Quarter: 2025Q1

REPORT INFORMATION
  Report Type: Spontaneous
  Country: GB (occurrence: GB)
  Receive Date: 20241219
  Receipt Date: 20250206
  Transmission Date: 20250409
  Serious: Yes (Other)
  Sender: BAXTER
  Company Number: None

PATIENT
  Sex: Female

DRUGS (1)
  1. ONDANSETRON [Suspect]
     Active Substance: ONDANSETRON
     Indication: Nausea
     Route: 065

REACTIONS (4)
  - Swelling face [Recovered/Resolved]
  - Eye swelling [Recovered/Resolved]
  - Paraesthesia [Recovered/Resolved]
  - Dyspnoea [Recovered/Resolved]
